FAERS Safety Report 4367468-0 (Version None)
Quarter: 2004Q2

REPORT INFORMATION
  Report Type: 
  Country: None (occurrence: None)
  Receive Date: 20040528
  Receipt Date: 20040331
  Transmission Date: 20050107
  Serious: Yes (Hospitalization)
  Sender: FDA-Public Use
  Company Number: CIP04000700

PATIENT
  Sex: Female

DRUGS (1)
  1. ACTONEL [Suspect]
     Indication: OSTEOPOROSIS
     Dosage: 35 MG, ONCE WEEKLY, ORAL
     Route: 048
     Dates: start: 20020901, end: 20040101

REACTIONS (1)
  - GASTRIC ULCER HAEMORRHAGE [None]
